FAERS Safety Report 21503846 (Version 5)
Quarter: 2022Q4

REPORT INFORMATION
  Report Type: Report from Study
  Country: CN (occurrence: CN)
  Receive Date: 20221025
  Receipt Date: 20221221
  Transmission Date: 20230113
  Serious: Yes (Hospitalization)
  Sender: FDA-Public Use
  Company Number: CN-NOVARTISPH-NVSC2022CN237836

PATIENT
  Age: 70 Year
  Sex: Male
  Weight: 52 kg

DRUGS (13)
  1. TISLELIZUMAB [Suspect]
     Active Substance: TISLELIZUMAB
     Indication: Adenocarcinoma gastric
     Dosage: 200 MG, Q3W
     Route: 042
     Dates: start: 20220831, end: 20220831
  2. TISLELIZUMAB [Suspect]
     Active Substance: TISLELIZUMAB
     Dosage: 200 MG, Q3W
     Route: 042
     Dates: start: 20221012, end: 20221012
  3. TISLELIZUMAB [Suspect]
     Active Substance: TISLELIZUMAB
     Dosage: 200 MG, Q3W
     Route: 042
     Dates: start: 20221102, end: 20221102
  4. TISLELIZUMAB [Suspect]
     Active Substance: TISLELIZUMAB
     Dosage: 200 MG, Q3W
     Route: 042
     Dates: start: 20221123
  5. ZANIDATAMAB [Suspect]
     Active Substance: ZANIDATAMAB
     Indication: Adenocarcinoma gastric
     Dosage: 8 MG/KG, Q3W (FIRST CYCLE)
     Route: 042
     Dates: start: 20220831, end: 20220831
  6. ZANIDATAMAB [Suspect]
     Active Substance: ZANIDATAMAB
     Dosage: 1800 MG, Q3W
     Route: 042
     Dates: start: 20221012, end: 20221012
  7. ZANIDATAMAB [Suspect]
     Active Substance: ZANIDATAMAB
     Dosage: 1800 MG, Q3W
     Route: 042
     Dates: start: 20221102, end: 20221102
  8. ZANIDATAMAB [Suspect]
     Active Substance: ZANIDATAMAB
     Dosage: 1800 MG, Q3W
     Route: 042
     Dates: start: 20221123
  9. CAPECITABINE [Suspect]
     Active Substance: CAPECITABINE
     Indication: Adenocarcinoma gastric
     Dosage: 1000 MG/M2, BID
     Route: 048
     Dates: start: 20220901, end: 20221014
  10. CAPECITABINE [Suspect]
     Active Substance: CAPECITABINE
     Dosage: 1000 MG/M2, BID
     Route: 048
     Dates: start: 20221012
  11. CAPECITABINE [Suspect]
     Active Substance: CAPECITABINE
     Dosage: 1.5G+1.0G
     Route: 048
     Dates: start: 20221102
  12. CAPECITABINE [Suspect]
     Active Substance: CAPECITABINE
     Dosage: 1.5G+1.0G
     Route: 048
     Dates: start: 20221125
  13. CAPECITABINE [Suspect]
     Active Substance: CAPECITABINE
     Dosage: 750 MG/M2
     Route: 048
     Dates: start: 20220901

REACTIONS (3)
  - Pyrexia [Recovered/Resolved]
  - Platelet count decreased [Recovered/Resolved]
  - Platelet count decreased [Recovered/Resolved]

NARRATIVE: CASE EVENT DATE: 20221013
